FAERS Safety Report 6580185-1 (Version None)
Quarter: 2010Q1

REPORT INFORMATION
  Report Type: 
  Country: None (occurrence: None)
  Receive Date: 20100203
  Receipt Date: 20100120
  Transmission Date: 20100710
  Serious: Yes (Other)
  Sender: FDA-Public Use
  Company Number: 1000011449

PATIENT
  Age: 60 Year

DRUGS (3)
  1. MEMANTINE HCL [Suspect]
     Indication: DEMENTIA ALZHEIMER'S TYPE
     Dosage: 40 GTT (40 GTT,1 IN 1 D), ORAL
     Route: 048
     Dates: start: 20090101
  2. CALCIMAX-D3 EFFERVESCENT [Concomitant]
  3. IBANDRONIK ACID [Concomitant]

REACTIONS (6)
  - CIRCUMSTANCE OR INFORMATION CAPABLE OF LEADING TO MEDICATION ERROR [None]
  - CONDITION AGGRAVATED [None]
  - DEMENTIA ALZHEIMER'S TYPE [None]
  - DYSENTERY [None]
  - HALLUCINATION [None]
  - INCORRECT DRUG ADMINISTRATION DURATION [None]
